FAERS Safety Report 7827704-2 (Version None)
Quarter: 2011Q4

REPORT INFORMATION
  Report Type: 
  Country: None (occurrence: None)
  Receive Date: 20111020
  Receipt Date: 20111013
  Transmission Date: 20120403
  Serious: Yes (Other)
  Sender: FDA-Public Use
  Company Number: PHHY2011DE91259

PATIENT
  Sex: Female

DRUGS (1)
  1. VOLTAREN [Suspect]
     Indication: CATARACT OPERATION
     Dosage: UNK UKN, BID
     Route: 047
     Dates: start: 20010101

REACTIONS (2)
  - VISUAL ACUITY REDUCED [None]
  - MACULAR DEGENERATION [None]
